FAERS Safety Report 13040657 (Version 1)
Quarter: 2016Q4

REPORT INFORMATION
  Report Type: Spontaneous
  Country: US (occurrence: US)
  Receive Date: 20161219
  Receipt Date: 20161219
  Transmission Date: 20170207
  Serious: No
  Sender: FDA-Public Use
  Company Number: US-MEDA-2016120029

PATIENT
  Age: 38 Year
  Sex: Female
  Weight: 43 kg

DRUGS (1)
  1. AVC CREAM [Suspect]
     Active Substance: SULFANILAMIDE
     Indication: VULVOVAGINAL CANDIDIASIS
     Route: 067
     Dates: start: 20161205, end: 20161205

REACTIONS (5)
  - Dizziness [Recovered/Resolved]
  - Visual impairment [Recovered/Resolved]
  - Disorganised speech [Recovered/Resolved]
  - Feeling abnormal [Recovered/Resolved]
  - Gait disturbance [Recovered/Resolved]

NARRATIVE: CASE EVENT DATE: 20161205
